FAERS Safety Report 20629788 (Version 1)
Quarter: 2022Q1

REPORT INFORMATION
  Report Type: Spontaneous
  Country: PT (occurrence: PT)
  Receive Date: 20220323
  Receipt Date: 20220323
  Transmission Date: 20220423
  Serious: Yes (Other)
  Sender: FDA-Public Use
  Company Number: PT-SUN PHARMACEUTICAL INDUSTRIES LTD-2022R1-330385

PATIENT
  Age: 62 Year
  Sex: Male

DRUGS (2)
  1. CARBOPLATIN [Suspect]
     Active Substance: CARBOPLATIN
     Indication: Basedow^s disease
     Dosage: AUC 5 (4 CYCLES)
     Route: 065
  2. PEMETREXED [Suspect]
     Active Substance: PEMETREXED
     Indication: Basedow^s disease
     Dosage: 500 MILLIGRAM/SQ. METER (4 CYCLES)
     Route: 065

REACTIONS (2)
  - Therapy partial responder [Unknown]
  - Anaemia [Unknown]
